FAERS Safety Report 8894172 (Version 3)
Quarter: 2013Q1

REPORT INFORMATION
  Report Type: Spontaneous
  Country: JP (occurrence: JP)
  Receive Date: 20121108
  Receipt Date: 20130122
  Transmission Date: 20140127
  Serious: Yes (Other)
  Sender: FDA-Public Use
  Company Number: JP-PFIZER INC-2012278810

PATIENT
  Age: 5 Decade
  Sex: Male

DRUGS (2)
  1. LYRICA [Suspect]
     Indication: HYPOAESTHESIA
     Dosage: 25 MG, 2X/DAY
     Route: 048
     Dates: start: 20121025
  2. METHYCOBAL [Concomitant]
     Indication: HYPOAESTHESIA
     Dosage: UNK

REACTIONS (2)
  - Sudden hearing loss [Unknown]
  - Tinnitus [Not Recovered/Not Resolved]
